FAERS Safety Report 7532710-1 (Version None)
Quarter: 2011Q2

REPORT INFORMATION
  Report Type: 
  Country: None (occurrence: None)
  Receive Date: 20110608
  Receipt Date: 20110125
  Transmission Date: 20111010
  Serious: Yes (Other)
  Sender: FDA-Public Use
  Company Number: A0910426A

PATIENT
  Sex: Male

DRUGS (1)
  1. ROSIGLITAZONE MALEATE [Suspect]
     Indication: DIABETES MELLITUS
     Route: 048

REACTIONS (4)
  - CARDIAC ASSISTANCE DEVICE USER [None]
  - IMPLANTABLE DEFIBRILLATOR INSERTION [None]
  - CEREBROVASCULAR ACCIDENT [None]
  - CARDIAC FAILURE [None]
